FAERS Safety Report 8286552-2 (Version None)
Quarter: 2012Q2

REPORT INFORMATION
  Report Type: 
  Country: None (occurrence: None)
  Receive Date: 20120416
  Receipt Date: 20120327
  Transmission Date: 20120825
  Serious: Yes (Other)
  Sender: FDA-Public Use
  Company Number: AT-B.I. PHARMACEUTICALS,INC./RIDGEFIELD-2012-AP-00251AP

PATIENT
  Age: 73 Year
  Sex: Female

DRUGS (4)
  1. PRADAXA [Suspect]
     Indication: ATRIAL FIBRILLATION
     Route: 048
     Dates: start: 20111125, end: 20120227
  2. LISINOPRIL [Concomitant]
  3. DIGIMERCK [Concomitant]
  4. LEXOTANIL [Concomitant]

REACTIONS (1)
  - HEPATIC ENZYME INCREASED [None]
